FAERS Safety Report 9760408 (Version 2)
Quarter: 2013Q4

REPORT INFORMATION
  Report Type: Spontaneous
  Country: US (occurrence: US)
  Receive Date: 20131216
  Receipt Date: 20131218
  Transmission Date: 20140711
  Serious: Yes (Other)
  Sender: FDA-Public Use
  Company Number: US-GILEAD-2013-0089951

PATIENT
  Age: 49 Year
  Sex: Male

DRUGS (3)
  1. LETAIRIS [Suspect]
     Indication: PORTOPULMONARY HYPERTENSION
     Dosage: 10 MG, QD
     Route: 065
     Dates: start: 20110104
  2. LETAIRIS [Suspect]
     Dosage: 5 UNK, UNK
  3. ADCIRCA [Concomitant]
     Indication: PULMONARY ARTERIAL HYPERTENSION
     Route: 065
     Dates: start: 201204

REACTIONS (2)
  - Swollen tongue [Unknown]
  - Lip swelling [Unknown]
